FAERS Safety Report 11599184 (Version 1)
Quarter: 2015Q4

REPORT INFORMATION
  Report Type: Spontaneous
  Country: US (occurrence: US)
  Receive Date: 20151006
  Receipt Date: 20151006
  Transmission Date: 20160304
  Serious: Yes (Other)
  Sender: FDA-Public Use
  Company Number: US-UCBSA-2015031157

PATIENT
  Sex: Female

DRUGS (3)
  1. ZARONTIN [Concomitant]
     Active Substance: ETHOSUXIMIDE
     Indication: PRODUCT USED FOR UNKNOWN INDICATION
     Dosage: UNKNOWN DOSE AND FREQUENCY
  2. MARIJUANA [Suspect]
     Active Substance: CANNABIS SATIVA SUBSP. INDICA TOP
     Indication: SEIZURE
     Dosage: UNKNOWN DOSE AND FREQUENCY
  3. KEPPRA [Suspect]
     Active Substance: LEVETIRACETAM
     Indication: PRODUCT USED FOR UNKNOWN INDICATION
     Dosage: UNKNOWN DOSE AND FREQUENCY

REACTIONS (8)
  - Postpartum haemorrhage [Unknown]
  - Pregnancy [Unknown]
  - Breast feeding [Unknown]
  - Suicide attempt [Unknown]
  - Drug abuse [Unknown]
  - Depression [Unknown]
  - Catatonia [Unknown]
  - Seizure [Unknown]
